FAERS Safety Report 11392788 (Version 2)
Quarter: 2018Q2

REPORT INFORMATION
  Report Type: Report from Study
  Country: US (occurrence: US)
  Receive Date: 20150818
  Receipt Date: 20180620
  Transmission Date: 20180711
  Serious: Yes (Death, Hospitalization, Other)
  Sender: FDA-Public Use
  Company Number: US-UNITED THERAPEUTICS-UNT-2015-010013

PATIENT
  Age: 83 Year
  Sex: Female
  Weight: 89 kg

DRUGS (19)
  1. ORAL TREPROSTINIL [Suspect]
     Active Substance: TREPROSTINIL
     Indication: PRODUCT USED FOR UNKNOWN INDICATION
     Dosage: 3 MG TDD
     Route: 048
     Dates: start: 20140717, end: 20150803
  2. OMEPRAZOLE. [Concomitant]
     Active Substance: OMEPRAZOLE
     Indication: GASTROOESOPHAGEAL REFLUX DISEASE
     Dosage: 20 MG (TOTAL DAILY DOSE)
     Route: 065
     Dates: start: 20150403, end: 20150403
  3. TRAMADOL. [Concomitant]
     Active Substance: TRAMADOL
     Indication: PAIN
     Dosage: 50 MG (TOTAL DAILY DOSE),PRN
     Route: 065
     Dates: start: 20121222, end: 20150803
  4. BISACODYL. [Concomitant]
     Active Substance: BISACODYL
     Indication: CONSTIPATION
     Dosage: 1 SUPPOSITORY, PRN
     Route: 054
     Dates: start: 20150325, end: 20150803
  5. POTASSIUM CHLORIDE. [Concomitant]
     Active Substance: POTASSIUM CHLORIDE
     Indication: PROPHYLAXIS
     Dosage: 20 MEQ (TOTAL DAILY DOSE)
     Route: 065
     Dates: start: 20090909, end: 20150803
  6. LEVOFLOXACIN. [Concomitant]
     Active Substance: LEVOFLOXACIN
     Indication: PYREXIA
     Dosage: 250 MG (TOTAL DAILY DOSE)
     Route: 065
     Dates: start: 20150731, end: 20150803
  7. ACETAMINOPHEN. [Concomitant]
     Active Substance: ACETAMINOPHEN
     Indication: PAIN
  8. ZYRTEC [Concomitant]
     Active Substance: CETIRIZINE HYDROCHLORIDE
     Indication: PRODUCT USED FOR UNKNOWN INDICATION
     Dosage: UNK
     Route: 065
  9. SYNTHROID [Concomitant]
     Active Substance: LEVOTHYROXINE SODIUM
     Indication: HYPOTHYROIDISM
     Dosage: 150 ?G (TOTAL DAILY DOSE)
     Route: 065
     Dates: start: 20100104, end: 20150803
  10. PEPCID [Concomitant]
     Active Substance: FAMOTIDINE
     Indication: DYSPEPSIA
     Dosage: 10 MG, PRN
     Route: 065
     Dates: start: 20120712, end: 20150803
  11. TYLENOL [Concomitant]
     Active Substance: ACETAMINOPHEN
     Indication: PRODUCT USED FOR UNKNOWN INDICATION
     Dosage: UNK
     Route: 065
  12. ADCIRCA [Concomitant]
     Active Substance: TADALAFIL
     Indication: PULMONARY ARTERIAL HYPERTENSION
     Dosage: 40 MG (TOTAL DAILY DOSE)
     Route: 065
     Dates: start: 20121217, end: 20150803
  13. BUMETANIDE. [Concomitant]
     Active Substance: BUMETANIDE
     Indication: OEDEMA
     Dosage: 2 OR 4 MG
     Route: 065
     Dates: start: 20130417, end: 20150803
  14. ROPINIROLE. [Concomitant]
     Active Substance: ROPINIROLE
     Indication: RESTLESS LEGS SYNDROME
     Dosage: 0.75 (TOTAL DAILY DOSE)
     Route: 065
     Dates: start: 20150323, end: 20150803
  15. CALCIUM CARBONATE AND VITAMIN D [Concomitant]
     Active Substance: CALCIUM CARBONATE\VITAMIN D
     Indication: PROPHYLAXIS
     Dosage: 1 TABLET (TOTAL DAILY DOSE)
     Route: 065
     Dates: start: 20120712, end: 20150803
  16. ASPIRIN                            /00002701/ [Concomitant]
     Active Substance: ASPIRIN
     Indication: PROPHYLAXIS
     Dosage: 81 MG (TOTAL DAILY DOSE)
     Route: 065
     Dates: start: 20100927, end: 20150803
  17. ACETAMINOPHEN. [Concomitant]
     Active Substance: ACETAMINOPHEN
     Indication: PYREXIA
     Dosage: 650 MG (TOTAL DAILY DOSE)
     Route: 065
     Dates: start: 20130102
  18. OMEGA-3 FATTY ACIDS [Concomitant]
     Active Substance: OMEGA-3 FATTY ACIDS
     Indication: PROPHYLAXIS
     Dosage: 1200 MG (TOTAL DAILY DOSE)
     Route: 065
     Dates: start: 20120712, end: 20150803
  19. METOLAZONE. [Concomitant]
     Active Substance: METOLAZONE
     Indication: OEDEMA
     Dosage: 2.5 MG (TOTAL DAILY DOSE), 2 TIMES/WK
     Route: 065
     Dates: start: 20130417, end: 20150803

REACTIONS (1)
  - Cerebrovascular accident [Fatal]

NARRATIVE: CASE EVENT DATE: 20150801
